FAERS Safety Report 15334983 (Version 1)
Quarter: 2018Q3

REPORT INFORMATION
  Report Type: Spontaneous
  Country: US (occurrence: US)
  Receive Date: 20180827
  Receipt Date: 20180827
  Transmission Date: 20181010
  Serious: Yes (Disabling)
  Sender: FDA-Public Use
  Company Number: None

PATIENT
  Age: 52 Year
  Sex: Male
  Weight: 80.29 kg

DRUGS (6)
  1. CIPRO [Suspect]
     Active Substance: CIPROFLOXACIN HYDROCHLORIDE
     Indication: INFECTION
     Dosage: ?          QUANTITY:PILL;?
     Route: 048
     Dates: start: 20180601, end: 20180607
  2. GLUTATHIONE [Concomitant]
     Active Substance: GLUTATHIONE
  3. CIPRO [Suspect]
     Active Substance: CIPROFLOXACIN HYDROCHLORIDE
     Indication: INFECTION PROPHYLAXIS
     Dosage: ?          QUANTITY:PILL;?
     Route: 048
     Dates: start: 20180601, end: 20180607
  4. RAPAFLO [Concomitant]
     Active Substance: SILODOSIN
  5. MAGNESIUM [Concomitant]
     Active Substance: MAGNESIUM
  6. A LIPOIC ACID [Concomitant]

REACTIONS (20)
  - Post procedural infection [None]
  - Dry mouth [None]
  - Disturbance in attention [None]
  - Personality change [None]
  - Blood glucose increased [None]
  - Arthralgia [None]
  - Fatigue [None]
  - Bacterial test positive [None]
  - Myalgia [None]
  - Saliva altered [None]
  - Chondropathy [None]
  - Streptococcus test positive [None]
  - Muscle atrophy [None]
  - Neuropathy peripheral [None]
  - Tendon pain [None]
  - Insomnia [None]
  - Paranasal sinus hyposecretion [None]
  - Weight decreased [None]
  - Cognitive disorder [None]
  - Tendon disorder [None]

NARRATIVE: CASE EVENT DATE: 20180606
